FAERS Safety Report 17554485 (Version 1)
Quarter: 2020Q1

REPORT INFORMATION
  Report Type: Spontaneous
  Country: GB (occurrence: GB)
  Receive Date: 20200318
  Receipt Date: 20200318
  Transmission Date: 20200409
  Serious: Yes (Other)
  Sender: FDA-Public Use
  Company Number: GB-EMD SERONO-9151496

PATIENT
  Sex: Female

DRUGS (1)
  1. REBIF [Suspect]
     Active Substance: INTERFERON BETA-1A
     Indication: MULTIPLE SCLEROSIS
     Dosage: 0.5 ML (12MILLION UNITS), SOLUTION FOR INJECTION 1.5ML CARTRIDGES, STRENGTH 36 MEGA U/1.5 ML
     Route: 058

REACTIONS (1)
  - Cardiac disorder [Unknown]
